FAERS Safety Report 19272271 (Version 2)
Quarter: 2021Q2

REPORT INFORMATION
  Report Type: Spontaneous
  Country: DE (occurrence: DE)
  Receive Date: 20210519
  Receipt Date: 20210531
  Transmission Date: 20210717
  Serious: Yes (Other)
  Sender: FDA-Public Use
  Company Number: DE-ORGANON-O2105DEU001246

PATIENT
  Sex: Female

DRUGS (3)
  1. EZETIMIBE. [Suspect]
     Active Substance: EZETIMIBE
     Indication: BLOOD CHOLESTEROL INCREASED
     Dosage: 1 DOSAGE FORM, QD (1 TABLET EVERY EVENING)
     Route: 048
     Dates: start: 20200813, end: 20210417
  2. THYRONAJOD [Concomitant]
     Active Substance: LEVOTHYROXINE SODIUM\POTASSIUM IODIDE
     Dosage: 1 DOSAGE FORM, QD, FOR ABOUT 40 YEARS 1 TABLET IN THE MORNING ON AN EMPTY STOMACH, 100 HENNING
     Route: 048
  3. FOSTER [Concomitant]
     Active Substance: BECLOMETHASONE\FORMOTEROL
     Indication: ASTHMA
     Dosage: 2 DOSAGE FORM, QD, ONE PUFF IN THE MORNING AND EVENING (200 MICROGRAMS / 6 MICROGRAMS PER INHALATION
     Route: 055

REACTIONS (6)
  - Fatigue [Recovered/Resolved]
  - Hypotonia [Recovered/Resolved]
  - Gait disturbance [Recovering/Resolving]
  - Vision blurred [Recovered/Resolved]
  - Muscle rupture [Recovered/Resolved]
  - Bursitis [Recovered/Resolved]

NARRATIVE: CASE EVENT DATE: 2020
